FAERS Safety Report 5532848-4 (Version None)
Quarter: 2007Q4

REPORT INFORMATION
  Report Type: 
  Country: None (occurrence: None)
  Receive Date: 20071130
  Receipt Date: 20071130
  Transmission Date: 20080405
  Serious: Yes (Other)
  Sender: FDA-Public Use
  Company Number: None

PATIENT

DRUGS (9)
  1. ATIVAN [Suspect]
     Indication: ANXIETY
     Dosage: 0.5MG BID PO
     Route: 048
  2. ZYPREXA [Concomitant]
  3. RISPERDAL [Concomitant]
  4. INVEGA [Concomitant]
  5. ABILIFY [Concomitant]
  6. LYRICA [Concomitant]
  7. RITALIN [Concomitant]
  8. STRATTERA [Concomitant]
  9. METADATE CD [Concomitant]

REACTIONS (2)
  - DYSKINESIA [None]
  - TIC [None]
